FAERS Safety Report 9140898 (Version 1)
Quarter: 2013Q1

REPORT INFORMATION
  Report Type: Spontaneous
  Country: US (occurrence: US)
  Receive Date: 20130305
  Receipt Date: 20130305
  Transmission Date: 20140127
  Serious: Yes (Other)
  Sender: FDA-Public Use
  Company Number: CHPA2013US003749

PATIENT
  Age: 60 Year
  Sex: Female

DRUGS (1)
  1. MAALOX ADV MAXIMUM STRENGTH ANTACID/ANTIGAS [Suspect]
     Indication: DYSPEPSIA
     Dosage: HALF A CAPFUL PER DOSE, UNK
     Route: 048
     Dates: end: 20130224

REACTIONS (2)
  - Coeliac disease [Not Recovered/Not Resolved]
  - Wrong technique in drug usage process [Unknown]
